FAERS Safety Report 6438582-0 (Version None)
Quarter: 2009Q4

REPORT INFORMATION
  Report Type: 
  Country: None (occurrence: None)
  Receive Date: 20091110
  Receipt Date: 20091027
  Transmission Date: 20100525
  Serious: Yes (Hospitalization)
  Sender: FDA-Public Use
  Company Number: 1000009828

PATIENT
  Age: 55 Year
  Sex: Female

DRUGS (1)
  1. NEBIVOLOL HCL [Suspect]
     Dosage: ONCE, ORAL
     Route: 048
     Dates: start: 20091024, end: 20091024

REACTIONS (2)
  - OVERDOSE [None]
  - SUICIDE ATTEMPT [None]
